FAERS Safety Report 18798540 (Version 1)
Quarter: 2021Q1

REPORT INFORMATION
  Report Type: Spontaneous
  Country: US (occurrence: US)
  Receive Date: 20210128
  Receipt Date: 20210128
  Transmission Date: 20210419
  Serious: No
  Sender: FDA-Public Use
  Company Number: US-BAYER-2021-030842

PATIENT
  Age: 87 Year
  Sex: Male

DRUGS (2)
  1. ASPIRIN (PAIN AND FEVER) [Suspect]
     Active Substance: ASPIRIN
  2. MIRALAX [Suspect]
     Active Substance: POLYETHYLENE GLYCOL 3350
     Indication: GASTROINTESTINAL DISORDER
     Dosage: TAKE 17 GRAMS IN 4?8 OUNCES OF BEVERAGE AN DRINK IT
     Route: 048
     Dates: start: 202101, end: 20210118

REACTIONS (3)
  - Rebound effect [Unknown]
  - Incorrect dosage administered [Unknown]
  - Expired product administered [Unknown]
